FAERS Safety Report 11746422 (Version 1)
Quarter: 2015Q4

REPORT INFORMATION
  Report Type: Other
  Country: GB (occurrence: GB)
  Receive Date: 20151117
  Receipt Date: 20151117
  Transmission Date: 20160304
  Serious: Yes (Other)
  Sender: FDA-Public Use
  Company Number: GB-MYLANLABS-2015M1038619

PATIENT

DRUGS (3)
  1. DOXYCYCLINE. [Suspect]
     Active Substance: DOXYCYCLINE
     Dosage: UNK
     Dates: start: 20151021, end: 20151022
  2. NAPROXEN. [Concomitant]
     Active Substance: NAPROXEN
     Dosage: UNK (TAKE ONE OR TWO TWICE A DAY)
     Dates: start: 20150805, end: 20150930
  3. MICROGYNON                         /00022701/ [Concomitant]
     Active Substance: ETHINYL ESTRADIOL\LEVONORGESTREL ACETATE
     Dosage: 1 DF, UNK (AS DIRECTED)
     Dates: start: 20150918

REACTIONS (6)
  - Salivary hypersecretion [Recovered/Resolved]
  - Feeling hot [Recovered/Resolved]
  - Feeling jittery [Recovered/Resolved]
  - Nervousness [Recovered/Resolved]
  - Malaise [Recovered/Resolved]
  - Palpitations [Recovered/Resolved]

NARRATIVE: CASE EVENT DATE: 20151021
